FAERS Safety Report 19142784 (Version 1)
Quarter: 2021Q2

REPORT INFORMATION
  Report Type: Spontaneous
  Country: US (occurrence: US)
  Receive Date: 20210416
  Receipt Date: 20210416
  Transmission Date: 20210717
  Serious: No
  Sender: FDA-Public Use
  Company Number: US-SA-2021SA123319

PATIENT
  Age: 57 Year
  Sex: Male

DRUGS (1)
  1. DUPIXENT [Suspect]
     Active Substance: DUPILUMAB
     Dosage: 300 MG, FREQUENCY: OTHER
     Route: 058
     Dates: start: 20210224

REACTIONS (4)
  - Ocular hyperaemia [Unknown]
  - Swelling of eyelid [Unknown]
  - Condition aggravated [Unknown]
  - Asthenopia [Unknown]

NARRATIVE: CASE EVENT DATE: 20210224
